FAERS Safety Report 5498781-1 (Version None)
Quarter: 2007Q4

REPORT INFORMATION
  Report Type: 
  Country: None (occurrence: None)
  Receive Date: 20071026
  Receipt Date: 20070924
  Transmission Date: 20080405
  Serious: No
  Sender: FDA-Public Use
  Company Number: A0664616A

PATIENT
  Age: 55 Year
  Sex: Male

DRUGS (9)
  1. ADVAIR DISKUS 100/50 [Suspect]
     Indication: ASTHMA
     Dosage: 1PUFF TWICE PER DAY
     Route: 055
  2. SINGULAIR [Concomitant]
  3. ALBUTEROL [Concomitant]
  4. AFEDITAB [Concomitant]
  5. HYZAAR [Concomitant]
  6. CLARINEX [Concomitant]
  7. CLOBETASOL PROPIONATE [Concomitant]
  8. FLUTICASONE PROPIONATE [Concomitant]
  9. MUCINEX [Concomitant]

REACTIONS (3)
  - PHARMACEUTICAL PRODUCT COMPLAINT [None]
  - PHARYNGOLARYNGEAL PAIN [None]
  - PLEURITIC PAIN [None]
